APPROVED DRUG PRODUCT: KETOROLAC TROMETHAMINE AND PHENYLEPHRINE HYDROCHLORIDE
Active Ingredient: KETOROLAC TROMETHAMINE; PHENYLEPHRINE HYDROCHLORIDE
Strength: EQ 0.3% BASE;EQ 1% BASE
Dosage Form/Route: SOLUTION;IRRIGATION
Application: A210183 | Product #001 | TE Code: AT
Applicant: LUPIN LTD
Approved: Jul 1, 2019 | RLD: No | RS: No | Type: RX